FAERS Safety Report 8439417-7 (Version None)
Quarter: 2012Q2

REPORT INFORMATION
  Report Type: 
  Country: None (occurrence: None)
  Receive Date: 20120615
  Receipt Date: 20120612
  Transmission Date: 20120825
  Serious: No
  Sender: FDA-Public Use
  Company Number: US-PFIZER INC-2012142371

PATIENT
  Sex: Female

DRUGS (5)
  1. ZOLOFT [Concomitant]
     Dosage: UNK
  2. PREMPRO [Concomitant]
     Dosage: UNK
  3. XANAX [Suspect]
     Dosage: 0.25 MG, UNK
  4. ALPRAZOLAM [Suspect]
     Dosage: UNK
  5. SYNTHROID [Concomitant]
     Dosage: UNK

REACTIONS (2)
  - SOMNOLENCE [None]
  - YAWNING [None]
